FAERS Safety Report 25666932 (Version 2)
Quarter: 2025Q4

REPORT INFORMATION
  Report Type: Spontaneous
  Country: US (occurrence: US)
  Receive Date: 20250811
  Receipt Date: 20251012
  Transmission Date: 20260117
  Serious: No
  Sender: SANOFI AVENTIS
  Company Number: US-SA-2025SA234581

PATIENT
  Age: 5 Year
  Sex: Male

DRUGS (1)
  1. DUPIXENT [Suspect]
     Active Substance: DUPILUMAB
     Indication: Asthma
     Dosage: 300 MG, Q4W
     Route: 058
     Dates: start: 20250616

REACTIONS (8)
  - Skin discolouration [Unknown]
  - Dyspnoea [Unknown]
  - Cough [Unknown]
  - Illness [Unknown]
  - Wheezing [Unknown]
  - Pyrexia [Unknown]
  - Sleep disorder [Unknown]
  - Asthma [Unknown]

NARRATIVE: CASE EVENT DATE: 20250101
